FAERS Safety Report 9169424 (Version 1)
Quarter: 2013Q1

REPORT INFORMATION
  Report Type: Spontaneous
  Country: ES (occurrence: ES)
  Receive Date: 20130318
  Receipt Date: 20130318
  Transmission Date: 20140127
  Serious: Yes (Other)
  Sender: FDA-Public Use
  Company Number: ES-ROCHE-645947

PATIENT
  Age: 40 Year
  Sex: Male

DRUGS (3)
  1. CEFTRIAXONE SODIUM [Suspect]
     Indication: BRAIN ABSCESS
     Route: 042
  2. PHENYTOIN [Suspect]
     Indication: STATUS EPILEPTICUS
     Route: 065
  3. METRONIDAZOLE [Concomitant]
     Indication: BRAIN ABSCESS
     Route: 065

REACTIONS (1)
  - Drug reaction with eosinophilia and systemic symptoms [Recovered/Resolved]
